FAERS Safety Report 9944307 (Version 1)
Quarter: 2014Q1

REPORT INFORMATION
  Report Type: Spontaneous
  Country: US (occurrence: US)
  Receive Date: 20140303
  Receipt Date: 20140303
  Transmission Date: 20141002
  Serious: No
  Sender: FDA-Public Use
  Company Number: US-ABBVIE-13P-163-1053204-00

PATIENT
  Age: 49 Year
  Sex: Female
  Weight: 58.57 kg

DRUGS (4)
  1. HUMIRA [Suspect]
     Indication: CROHN^S DISEASE
     Dates: start: 201009
  2. PROBIOTICS [Concomitant]
     Indication: VITAMIN SUPPLEMENTATION
  3. VITAMINS [Concomitant]
     Indication: VITAMIN SUPPLEMENTATION
  4. FOLIC ACID [Concomitant]
     Indication: VITAMIN SUPPLEMENTATION

REACTIONS (5)
  - Adnexa uteri pain [Recovered/Resolved]
  - Oral herpes [Not Recovered/Not Resolved]
  - Productive cough [Not Recovered/Not Resolved]
  - Oral herpes [Not Recovered/Not Resolved]
  - Premenstrual syndrome [Recovered/Resolved]
